FAERS Safety Report 15843821 (Version 4)
Quarter: 2019Q1

REPORT INFORMATION
  Report Type: Spontaneous
  Country: JP (occurrence: JP)
  Receive Date: 20190118
  Receipt Date: 20190218
  Transmission Date: 20190417
  Serious: Yes (Other)
  Sender: FDA-Public Use
  Company Number: JP-AMGEN-JPNSP2019006732

PATIENT
  Age: 53 Year
  Sex: Male

DRUGS (9)
  1. ENALAPRIL MALEATE. [Concomitant]
     Active Substance: ENALAPRIL MALEATE
     Dosage: UNK
  2. NEXIUM [Concomitant]
     Active Substance: ESOMEPRAZOLE MAGNESIUM
     Dosage: UNK
  3. ATORVASTATIN [Concomitant]
     Active Substance: ATORVASTATIN
     Indication: TYPE IIA HYPERLIPIDAEMIA
     Dosage: 40 MG, QD
  4. PLAVIX [Concomitant]
     Active Substance: CLOPIDOGREL BISULFATE
     Dosage: UNK
  5. REPATHA [Suspect]
     Active Substance: EVOLOCUMAB
     Indication: TYPE IIA HYPERLIPIDAEMIA
     Dosage: 140 MG, Q2WK
     Route: 058
     Dates: start: 201809, end: 201812
  6. SPIRONOLACTONE. [Concomitant]
     Active Substance: SPIRONOLACTONE
     Dosage: UNK
  7. BISOPROLOL FUMARATE. [Concomitant]
     Active Substance: BISOPROLOL FUMARATE
     Dosage: UNK
  8. ETHYL ICOSAPENTATE [Concomitant]
     Active Substance: ICOSAPENT ETHYL
     Dosage: UNK
  9. BAYASPIRIN [Concomitant]
     Active Substance: ASPIRIN
     Dosage: UNK

REACTIONS (2)
  - Nephrotic syndrome [Recovering/Resolving]
  - Vascular stent stenosis [Recovering/Resolving]

NARRATIVE: CASE EVENT DATE: 201812
